FAERS Safety Report 12788689 (Version 1)
Quarter: 2016Q3

REPORT INFORMATION
  Report Type: Other
  Country: CA (occurrence: CA)
  Receive Date: 20160928
  Receipt Date: 20160928
  Transmission Date: 20161109
  Serious: Yes (Hospitalization, Disabling)
  Sender: FDA-Public Use
  Company Number: CA-APOTEX-2016AP011804

PATIENT
  Age: 54 Year
  Sex: Male

DRUGS (9)
  1. APO-RISPERIDONE [Suspect]
     Active Substance: RISPERIDONE
     Indication: DEPRESSION
  2. APO-OLANZAPINE [Suspect]
     Active Substance: OLANZAPINE
     Indication: PSYCHOTIC DISORDER
     Dosage: 12 MG, UNK
     Route: 048
  3. INVEGA [Suspect]
     Active Substance: PALIPERIDONE
     Indication: DEPRESSION
  4. APO-OLANZAPINE [Suspect]
     Active Substance: OLANZAPINE
     Indication: DEPRESSION
     Dosage: 10 MG, UNK
     Route: 048
  5. APO-RISPERIDONE [Suspect]
     Active Substance: RISPERIDONE
     Indication: PSYCHOTIC DISORDER
     Dosage: 2 MG, QD
     Route: 048
  6. APO-RISPERIDONE [Suspect]
     Active Substance: RISPERIDONE
     Indication: ANXIETY
  7. INVEGA [Suspect]
     Active Substance: PALIPERIDONE
     Indication: ANXIETY
  8. INVEGA [Suspect]
     Active Substance: PALIPERIDONE
     Indication: PSYCHOTIC DISORDER
     Dosage: 12 MG, UNK
     Route: 048
  9. APO-OLANZAPINE [Suspect]
     Active Substance: OLANZAPINE
     Indication: ANXIETY

REACTIONS (6)
  - Blood glucose increased [Unknown]
  - Vision blurred [Unknown]
  - Muscle spasms [Unknown]
  - Restlessness [Unknown]
  - Musculoskeletal stiffness [Unknown]
  - Somnolence [Unknown]
